FAERS Safety Report 12304566 (Version 6)
Quarter: 2019Q1

REPORT INFORMATION
  Report Type: Report from Study
  Country: CA (occurrence: CA)
  Receive Date: 20160426
  Receipt Date: 20190327
  Transmission Date: 20190417
  Serious: Yes (Other)
  Sender: FDA-Public Use
  Company Number: PHHY2016CA055639

PATIENT
  Age: 55 Year
  Sex: Female

DRUGS (5)
  1. ILARIS [Suspect]
     Active Substance: CANAKINUMAB
     Indication: MUCKLE-WELLS SYNDROME
     Dosage: 150 MG, EVERY 8 WEEKS
     Route: 058
     Dates: start: 20140602
  2. ILARIS [Suspect]
     Active Substance: CANAKINUMAB
     Dosage: 150 MG, EVERY 8 WEEKS
     Route: 058
  3. ILARIS [Suspect]
     Active Substance: CANAKINUMAB
     Dosage: 150 MG, UNK (EVERY 7 WEEKS)
     Route: 058
     Dates: start: 20181130
  4. ILARIS [Suspect]
     Active Substance: CANAKINUMAB
     Dosage: 150 MG, EVERY 7 WEEKS
     Route: 058
     Dates: start: 20181016
  5. ILARIS [Suspect]
     Active Substance: CANAKINUMAB
     Dosage: 150 MG, EVERY 7 WEEKS
     Route: 058
     Dates: start: 20190111

REACTIONS (25)
  - Pyrexia [Unknown]
  - Cough [Not Recovered/Not Resolved]
  - Dysphonia [Not Recovered/Not Resolved]
  - Diabetes mellitus [Unknown]
  - Inflammatory marker increased [Unknown]
  - Blood pressure increased [Unknown]
  - Administration site pain [Unknown]
  - Fatigue [Unknown]
  - Rhinorrhoea [Not Recovered/Not Resolved]
  - Administration site infection [Unknown]
  - Administration site swelling [Unknown]
  - Rash [Unknown]
  - Appetite disorder [Unknown]
  - Varicose vein [Not Recovered/Not Resolved]
  - Inappropriate schedule of product administration [Unknown]
  - Temperature intolerance [Unknown]
  - Hypoacusis [Unknown]
  - Concomitant disease aggravated [Not Recovered/Not Resolved]
  - Malaise [Unknown]
  - Pterygium [Unknown]
  - Nasopharyngitis [Not Recovered/Not Resolved]
  - Arthralgia [Unknown]
  - Weight increased [Unknown]
  - Administration site discolouration [Unknown]
  - Conjunctivitis [Unknown]

NARRATIVE: CASE EVENT DATE: 201507
